FAERS Safety Report 19996976 (Version 1)
Quarter: 2021Q4

REPORT INFORMATION
  Report Type: Spontaneous
  Country: US (occurrence: US)
  Receive Date: 20211026
  Receipt Date: 20211026
  Transmission Date: 20220303
  Serious: No
  Sender: FDA-Public Use
  Company Number: None

PATIENT
  Age: 46 Year
  Sex: Female
  Weight: 50.4 kg

DRUGS (1)
  1. TESTOSTERONE CYPIONATE [Suspect]
     Active Substance: TESTOSTERONE CYPIONATE
     Indication: Blood testosterone decreased
     Dosage: ?          QUANTITY:1 INJECTION(S);OTHER FREQUENCY:1X WEEK;OTHER ROUTE:INJECTED INTO FAT
     Dates: start: 20210910, end: 20211022

REACTIONS (5)
  - Recalled product [None]
  - Injection site erythema [None]
  - Injection site pain [None]
  - Urticaria [None]
  - Recalled product administered [None]

NARRATIVE: CASE EVENT DATE: 20211022
